FAERS Safety Report 9462209 (Version 2)
Quarter: 2013Q3

REPORT INFORMATION
  Report Type: Report from Study
  Country: FR (occurrence: FR)
  Receive Date: 20130816
  Receipt Date: 20130826
  Transmission Date: 20140515
  Serious: Yes (Hospitalization)
  Sender: FDA-Public Use
  Company Number: FR-PFIZER INC-2013236717

PATIENT
  Sex: 0

DRUGS (4)
  1. RAMIPRIL [Suspect]
     Dosage: UNK
     Route: 065
  2. AMLODIPINE BESILATE [Suspect]
     Dosage: UNK
     Route: 065
  3. RISPERIDONE [Suspect]
     Dosage: UNK
     Route: 065
  4. MIANSERIN [Suspect]
     Dosage: UNK
     Route: 065

REACTIONS (1)
  - Faecaloma [Unknown]
